FAERS Safety Report 5655637-9 (Version None)
Quarter: 2008Q1

REPORT INFORMATION
  Report Type: 
  Country: None (occurrence: None)
  Receive Date: 20080307
  Receipt Date: 20080304
  Transmission Date: 20080703
  Serious: Yes (Death, Hospitalization)
  Sender: FDA-Public Use
  Company Number: DE-JNJFOC-20080205309

PATIENT
  Sex: Female

DRUGS (21)
  1. TRAMAL [Suspect]
     Route: 048
  2. TRAMAL [Suspect]
     Indication: PAIN
     Route: 048
  3. MCP [Concomitant]
     Route: 065
  4. DIPIDOLOR [Concomitant]
     Route: 065
  5. HEPARIN SODIUM [Concomitant]
     Route: 065
  6. HEPARIN [Concomitant]
     Route: 065
  7. COTRIM [Concomitant]
     Route: 065
  8. CALCIUM [Concomitant]
     Route: 065
  9. NEOTRI [Concomitant]
     Route: 065
  10. PANTOZOL [Concomitant]
     Route: 065
  11. AZOPT [Concomitant]
     Route: 065
  12. LACTULOSE [Concomitant]
     Route: 065
  13. FRAXIPARIN [Concomitant]
     Route: 065
  14. ALL OTHER THERAPEUTIC PRODUCTS [Concomitant]
     Route: 065
  15. IRENAT [Concomitant]
     Route: 065
  16. NOCTAZEPAM [Concomitant]
     Route: 065
  17. LOESCALCON [Concomitant]
     Route: 065
  18. FAVISTAN [Concomitant]
     Route: 065
  19. VIOXX [Concomitant]
     Route: 065
  20. TAVEGIL [Concomitant]
     Route: 065
  21. PREDNISOLONE [Concomitant]
     Route: 065

REACTIONS (1)
  - TOXIC EPIDERMAL NECROLYSIS [None]
